FAERS Safety Report 6621951-3 (Version None)
Quarter: 2010Q1

REPORT INFORMATION
  Report Type: 
  Country: None (occurrence: None)
  Receive Date: 20100223
  Receipt Date: 20091223
  Transmission Date: 20100710
  Serious: No
  Sender: FDA-Public Use
  Company Number: 003812

PATIENT
  Sex: Female

DRUGS (1)
  1. CIMZIA [Suspect]
     Dosage: SUBCUTANEOUS
     Route: 058
     Dates: start: 20090302

REACTIONS (4)
  - EAR INFECTION [None]
  - INFECTIOUS MONONUCLEOSIS [None]
  - PHARYNGITIS STREPTOCOCCAL [None]
  - SINUSITIS [None]
